FAERS Safety Report 7733731-6 (Version None)
Quarter: 2011Q3

REPORT INFORMATION
  Report Type: 
  Country: None (occurrence: None)
  Receive Date: 20110902
  Receipt Date: 20110902
  Transmission Date: 20111222
  Serious: Yes (Hospitalization)
  Sender: FDA-Public Use
  Company Number: None

PATIENT
  Sex: Female
  Weight: 44.9061 kg

DRUGS (1)
  1. AZITHROMYCIN [Suspect]
     Indication: BRONCHITIS
     Dosage: 2 TAB (DAY) DAILY ORAL 1 TAB DAILY X 4 DAYS DAILY ORAL
     Route: 048
     Dates: start: 20110628, end: 20110630

REACTIONS (5)
  - CARDIAC FAILURE CONGESTIVE [None]
  - DEHYDRATION [None]
  - ATRIAL FIBRILLATION [None]
  - DISORIENTATION [None]
  - PNEUMONIA [None]
